FAERS Safety Report 7321567-X (Version None)
Quarter: 2011Q1

REPORT INFORMATION
  Report Type: 
  Country: None (occurrence: None)
  Receive Date: 20110216
  Receipt Date: 20110202
  Transmission Date: 20110831
  Serious: Yes (Hospitalization)
  Sender: FDA-Public Use
  Company Number: 2011MA000993

PATIENT
  Age: 36 Year
  Sex: Male
  Weight: 80 kg

DRUGS (1)
  1. LIDOCAINE [Suspect]

REACTIONS (9)
  - PARAESTHESIA ORAL [None]
  - NEUROTOXICITY [None]
  - HYPERTENSION [None]
  - TACHYCARDIA [None]
  - HEADACHE [None]
  - DIZZINESS [None]
  - DIPLOPIA [None]
  - ELECTROCARDIOGRAM ST SEGMENT DEPRESSION [None]
  - DRUG RESISTANCE [None]
